FAERS Safety Report 8582959-4 (Version None)
Quarter: 2012Q3

REPORT INFORMATION
  Report Type: 
  Country: None (occurrence: None)
  Receive Date: 20120727
  Receipt Date: 20120718
  Transmission Date: 20120928
  Serious: Yes (Hospitalization, Other)
  Sender: FDA-Public Use
  Company Number: AUR-APL-2012-02747

PATIENT
  Age: 61 Year
  Sex: Female

DRUGS (2)
  1. INSULIN [Suspect]
  2. METFFORMIN HYDROCHLORIDE [Suspect]
     Indication: PRODUCT USED FOR UNKNOWN INDICATION

REACTIONS (11)
  - ANURIA [None]
  - SEPTIC SHOCK [None]
  - CONFUSIONAL STATE [None]
  - METABOLIC ACIDOSIS [None]
  - ABDOMINAL DISCOMFORT [None]
  - BRADYCARDIA [None]
  - LACTIC ACIDOSIS [None]
  - CONTINUOUS HAEMODIAFILTRATION [None]
  - TACHYPNOEA [None]
  - HYPERKALAEMIA [None]
  - HYPOTENSION [None]
